FAERS Safety Report 23059883 (Version 1)
Quarter: 2023Q4

REPORT INFORMATION
  Report Type: Spontaneous
  Country: US (occurrence: US)
  Receive Date: 20231012
  Receipt Date: 20231012
  Transmission Date: 20240110
  Serious: Yes (Other)
  Sender: FDA-Public Use
  Company Number: US-OTSUKA-2023_026295

PATIENT
  Sex: Female

DRUGS (3)
  1. ABILIFY [Suspect]
     Active Substance: ARIPIPRAZOLE
     Indication: Depression
     Dosage: UNK
     Route: 065
  2. XANAX [Concomitant]
     Active Substance: ALPRAZOLAM
     Indication: Product used for unknown indication
     Dosage: UNK, THREE TIMES A DAY
     Route: 065
  3. LISINOPRIL [Concomitant]
     Active Substance: LISINOPRIL
     Indication: Blood pressure abnormal
     Dosage: UNK
     Route: 065

REACTIONS (10)
  - Blindness [Unknown]
  - Balance disorder [Unknown]
  - Fear [Unknown]
  - Vertigo [Unknown]
  - Depressed mood [Unknown]
  - Nausea [Unknown]
  - Weight increased [Unknown]
  - Headache [Unknown]
  - Treatment noncompliance [Unknown]
  - Wrong technique in product usage process [Unknown]
